FAERS Safety Report 26159277 (Version 1)
Quarter: 2025Q4

REPORT INFORMATION
  Report Type: Spontaneous
  Country: GB (occurrence: GB)
  Receive Date: 20251216
  Receipt Date: 20251216
  Transmission Date: 20260118
  Serious: Yes (Hospitalization, Other)
  Sender: Haleon PLC
  Company Number: GB-HALEON-2278945

PATIENT
  Age: 42 Year
  Sex: Female

DRUGS (2)
  1. IBUPROFEN [Suspect]
     Active Substance: IBUPROFEN
     Indication: Analgesic therapy
     Dosage: FOR SEVERAL MONTHS
  2. CITALOPRAM [Concomitant]
     Active Substance: CITALOPRAM
     Indication: Product used for unknown indication

REACTIONS (16)
  - Colitis [Unknown]
  - Weight decreased [Unknown]
  - Gastritis [Unknown]
  - Ascites [Unknown]
  - Abdominal pain [Unknown]
  - Hypoalbuminaemia [Unknown]
  - Hypokalaemia [Unknown]
  - Gastrointestinal ulcer [Unknown]
  - Vomiting [Unknown]
  - Iron deficiency anaemia [Unknown]
  - Intestinal diaphragm disease [Unknown]
  - Condition aggravated [Unknown]
  - Nausea [Unknown]
  - Small intestinal obstruction [Unknown]
  - Intestinal stenosis [Unknown]
  - Malabsorption [Unknown]
